FAERS Safety Report 8966849 (Version 1)
Quarter: 2012Q4

REPORT INFORMATION
  Report Type: 
  Country: CH (occurrence: CH)
  Receive Date: 20121217
  Receipt Date: 20121217
  Transmission Date: 20130627
  Serious: Yes (Hospitalization)
  Sender: FDA-Public Use
  Company Number: CH-PFIZER INC-2012316706

PATIENT
  Age: 77 Year
  Sex: Female

DRUGS (9)
  1. MORPHINE SULFATE [Suspect]
     Indication: LOW BACK PAIN
     Dosage: 80 mg, Daily
     Route: 048
     Dates: start: 201207
  2. DALMADORM [Suspect]
     Indication: LOW BACK PAIN
     Dosage: 7.5 mg, 2x/day
     Route: 065
  3. CALCIPARINE [Concomitant]
     Dosage: UNK
  4. DOSPIR [Concomitant]
     Dosage: UNK
  5. ESIDREX [Concomitant]
     Dosage: UNK
  6. SIMVASTATIN [Concomitant]
     Dosage: UNK
  7. NEXIUM [Concomitant]
     Dosage: UNK
  8. TORASEMIDE [Concomitant]
     Dosage: UNK
  9. DAFALGAN [Concomitant]
     Dosage: UNK

REACTIONS (1)
  - Acute respiratory distress syndrome [Recovered/Resolved]
